FAERS Safety Report 10025924 (Version 1)
Quarter: 2014Q1

REPORT INFORMATION
  Report Type: Spontaneous
  Country: FR (occurrence: None)
  Receive Date: 20140314
  Receipt Date: 20140314
  Transmission Date: 20141002
  Serious: Yes (Other)
  Sender: FDA-Public Use
  Company Number: 2225224

PATIENT
  Age: 56 Year
  Sex: Female

DRUGS (6)
  1. CARBOPLATIN [Suspect]
     Indication: OVARIAN CANCER STAGE III
     Dosage: (NOT OTHERWISE SPECIFIED)
     Route: 042
     Dates: start: 20131205, end: 20131205
  2. DOCETAXEL ACCORD [Suspect]
     Indication: OVARIAN CANCER STAGE III
     Dosage: (NOT OTHERWISE SPECIFIED)
     Route: 042
     Dates: start: 20131205, end: 20131205
  3. METHYLPREDNISOLONE [Suspect]
     Indication: PREMEDICATION
     Dosage: (NOT OTHERWISE SPECIFIED)
     Route: 042
     Dates: start: 20131204, end: 20131205
  4. AERIUS /01398501/ [Suspect]
     Indication: PREMEDICATION
     Route: 048
     Dates: start: 20131204, end: 20131205
  5. NEBIVOLOL [Concomitant]
  6. LEVOTHYROX [Concomitant]

REACTIONS (4)
  - Erythema [None]
  - Blood pressure increased [None]
  - Heat stroke [None]
  - Throat tightness [None]
